FAERS Safety Report 11599519 (Version 4)
Quarter: 2015Q4

REPORT INFORMATION
  Report Type: Spontaneous
  Country: None (occurrence: US)
  Receive Date: 20151006
  Receipt Date: 20151112
  Transmission Date: 20160304
  Serious: No
  Sender: FDA-Public Use
  Company Number: US-RARE DISEASE THERAPEUTICS, INC.-1042656

PATIENT
  Age: 8 Year
  Sex: Male
  Weight: 35 kg

DRUGS (6)
  1. CYSTADANE [Suspect]
     Active Substance: BETAINE
     Indication: CYSTATHIONINE BETA-SYNTHASE DEFICIENCY
     Route: 048
     Dates: start: 20140712
  2. FOLIC ACID. [Concomitant]
     Active Substance: FOLIC ACID
  3. CYSTADANE [Suspect]
     Active Substance: BETAINE
     Route: 048
     Dates: start: 20150630
  4. CYSTADANE [Suspect]
     Active Substance: BETAINE
     Dates: start: 200712
  5. CYSTADANE [Suspect]
     Active Substance: BETAINE
     Route: 048
     Dates: start: 20150630
  6. VITAMIN B6 [Concomitant]
     Active Substance: PYRIDOXINE HYDROCHLORIDE

REACTIONS (5)
  - Inappropriate schedule of drug administration [Recovered/Resolved]
  - Ear pain [Recovered/Resolved]
  - Overdose [Recovered/Resolved]
  - Overdose [Not Recovered/Not Resolved]
  - Tooth infection [Recovered/Resolved]

NARRATIVE: CASE EVENT DATE: 201409
